FAERS Safety Report 14884335 (Version 2)
Quarter: 2018Q2

REPORT INFORMATION
  Report Type: Spontaneous
  Country: US (occurrence: US)
  Receive Date: 20180511
  Receipt Date: 20180516
  Transmission Date: 20180711
  Serious: Yes (Hospitalization)
  Sender: FDA-Public Use
  Company Number: US-SA-2018SA125145

PATIENT
  Age: 68 Year
  Sex: Female

DRUGS (10)
  1. LANTUS SOLOSTAR [Suspect]
     Active Substance: INSULIN GLARGINE
     Route: 051
  2. LANTUS SOLOSTAR [Suspect]
     Active Substance: INSULIN GLARGINE
     Route: 051
  3. SOLOSTAR [Suspect]
     Active Substance: DEVICE
  4. LANTUS SOLOSTAR [Suspect]
     Active Substance: INSULIN GLARGINE
     Route: 051
  5. SOLOSTAR [Suspect]
     Active Substance: DEVICE
  6. SOLOSTAR [Suspect]
     Active Substance: DEVICE
  7. NOVOLOG [Concomitant]
     Active Substance: INSULIN ASPART
     Dosage: 6 TIMES A DAY
     Route: 065
  8. LANTUS SOLOSTAR [Suspect]
     Active Substance: INSULIN GLARGINE
     Route: 051
  9. SOLOSTAR [Suspect]
     Active Substance: DEVICE
  10. METFORMIN [Concomitant]
     Active Substance: METFORMIN HYDROCHLORIDE
     Dosage: BEFORE MEALS
     Route: 065

REACTIONS (7)
  - Oedema peripheral [Unknown]
  - Hospitalisation [Unknown]
  - Dizziness [Unknown]
  - Injection site discolouration [Unknown]
  - Device issue [Unknown]
  - Blood glucose increased [Unknown]
  - Blood glucose decreased [Unknown]
